FAERS Safety Report 21832143 (Version 40)
Quarter: 2025Q1

REPORT INFORMATION
  Report Type: Report from Study
  Country: US (occurrence: US)
  Receive Date: 20230106
  Receipt Date: 20250324
  Transmission Date: 20250408
  Serious: Yes (Hospitalization, Other)
  Sender: TAKEDA
  Company Number: US-TAKEDA-2023TUS001622

PATIENT
  Age: 77 Year
  Sex: Female
  Weight: 59 kg

DRUGS (52)
  1. HUMAN IMMUNOGLOBULIN G [Suspect]
     Active Substance: HUMAN IMMUNOGLOBULIN G
     Indication: Stiff person syndrome
     Dosage: 35 GRAM, Q4WEEKS
     Dates: start: 20180608
  2. HUMAN IMMUNOGLOBULIN G [Suspect]
     Active Substance: HUMAN IMMUNOGLOBULIN G
  3. BENADRYL [Suspect]
     Active Substance: DIPHENHYDRAMINE HYDROCHLORIDE
     Indication: Product used for unknown indication
  4. DIPHENHYDRAMINE [Suspect]
     Active Substance: DIPHENHYDRAMINE
     Indication: Product used for unknown indication
  5. ACETAMINOPHEN [Concomitant]
     Active Substance: ACETAMINOPHEN
  6. EPINEPHRINE [Concomitant]
     Active Substance: EPINEPHRINE
  7. ATORVASTATIN CALCIUM [Concomitant]
     Active Substance: ATORVASTATIN CALCIUM
  8. CARVEDILOL [Concomitant]
     Active Substance: CARVEDILOL
  9. OMEPRAZOLE [Concomitant]
     Active Substance: OMEPRAZOLE
  10. NYSTATIN [Concomitant]
     Active Substance: NYSTATIN
  11. ACETAMINOPHEN\HYDROCODONE [Concomitant]
     Active Substance: ACETAMINOPHEN\HYDROCODONE
  12. HEPARIN [Concomitant]
     Active Substance: HEPARIN SODIUM
  13. SODIUM CHLORIDE [Concomitant]
     Active Substance: SODIUM CHLORIDE
  14. FERGON [Concomitant]
     Active Substance: FERROUS GLUCONATE
  15. VITAMIN C [Concomitant]
     Active Substance: ASCORBIC ACID
  16. ALENDRONATE SODIUM [Concomitant]
     Active Substance: ALENDRONATE SODIUM
  17. LOSARTAN POTASSIUM [Concomitant]
     Active Substance: LOSARTAN POTASSIUM
  18. PREDNISONE [Concomitant]
     Active Substance: PREDNISONE
  19. VITAMIN D3 [Concomitant]
     Active Substance: CHOLECALCIFEROL
  20. AMOXICILLIN AND CLAVULANATE POTASSIUM [Concomitant]
     Active Substance: AMOXICILLIN\CLAVULANATE POTASSIUM
  21. DIPHENHYDRAMINE HYDROCHLORIDE [Concomitant]
     Active Substance: DIPHENHYDRAMINE HYDROCHLORIDE
  22. Lmx [Concomitant]
  23. SOLU-MEDROL [Concomitant]
     Active Substance: METHYLPREDNISOLONE SODIUM SUCCINATE
  24. CALCIUM\CHOLECALCIFEROL [Concomitant]
     Active Substance: CALCIUM\CHOLECALCIFEROL
  25. OXYGEN [Concomitant]
     Active Substance: OXYGEN
  26. ALBUTEROL [Concomitant]
     Active Substance: ALBUTEROL
  27. POTASSIUM CHLORIDE [Concomitant]
     Active Substance: POTASSIUM CHLORIDE
  28. COREG [Concomitant]
     Active Substance: CARVEDILOL
  29. AMLODIPINE BESYLATE [Concomitant]
     Active Substance: AMLODIPINE BESYLATE
  30. NORCO [Concomitant]
     Active Substance: ACETAMINOPHEN\HYDROCODONE BITARTRATE
  31. AMLODIPINE [Concomitant]
     Active Substance: AMLODIPINE BESYLATE
  32. ATROVENT [Concomitant]
     Active Substance: IPRATROPIUM BROMIDE
  33. FUROSEMIDE [Concomitant]
     Active Substance: FUROSEMIDE
  34. ALBUTEROL SULFATE [Concomitant]
     Active Substance: ALBUTEROL SULFATE
  35. IPRATROPIUM BROMIDE [Concomitant]
     Active Substance: IPRATROPIUM BROMIDE
  36. VITAMIN B [Concomitant]
     Active Substance: VITAMIN B
  37. Neuriva brain performance [Concomitant]
  38. POTASSIUM [Concomitant]
     Active Substance: POTASSIUM
  39. CYCLOBENZAPRINE HYDROCHLORIDE [Concomitant]
     Active Substance: CYCLOBENZAPRINE HYDROCHLORIDE
  40. VENTOLIN HFA [Concomitant]
     Active Substance: ALBUTEROL SULFATE
  41. PEPTO-BISMOL [Concomitant]
     Active Substance: BISMUTH SUBSALICYLATE
  42. MECLIZINE HYDROCHLORIDE [Concomitant]
     Active Substance: MECLIZINE HYDROCHLORIDE
  43. MELOXICAM [Concomitant]
     Active Substance: MELOXICAM
  44. TIZANIDINE HYDROCHLORIDE [Concomitant]
     Active Substance: TIZANIDINE HYDROCHLORIDE
  45. LOPERAMIDE [Concomitant]
     Active Substance: LOPERAMIDE
  46. TACROLIMUS [Concomitant]
     Active Substance: TACROLIMUS
     Dosage: 0.5 MILLIGRAM, BID
  47. AUGMENTIN [Concomitant]
     Active Substance: AMOXICILLIN\CLAVULANATE POTASSIUM
  48. FERROUS GLUCONATE [Concomitant]
     Active Substance: FERROUS GLUCONATE
  49. LASIX [Concomitant]
     Active Substance: FUROSEMIDE
  50. KLOR-CON [Concomitant]
     Active Substance: POTASSIUM CHLORIDE
  51. MORPHINE [Concomitant]
     Active Substance: MORPHINE
  52. BUPRENORPHINE [Concomitant]
     Active Substance: BUPRENORPHINE

REACTIONS (76)
  - Lower limb fracture [Unknown]
  - Hip fracture [Unknown]
  - Fall [Unknown]
  - Dysuria [Unknown]
  - Pneumonia [Unknown]
  - Blood sodium decreased [Unknown]
  - Sarcoidosis [Unknown]
  - Cellulitis [Unknown]
  - Loss of consciousness [Unknown]
  - Vertigo [Unknown]
  - Chest pain [Unknown]
  - Dizziness [Unknown]
  - Blood pressure decreased [Unknown]
  - Limb injury [Unknown]
  - Catheter site exfoliation [Unknown]
  - Weight increased [Unknown]
  - Catheter site discomfort [Unknown]
  - Cystitis [Unknown]
  - Total lung capacity decreased [Unknown]
  - Illness [Unknown]
  - Poor venous access [Unknown]
  - Weight decreased [Unknown]
  - Bedridden [Unknown]
  - Productive cough [Unknown]
  - Fracture pain [Unknown]
  - Cyst [Unknown]
  - Hangover [Unknown]
  - Localised infection [Unknown]
  - Stress [Unknown]
  - Insurance issue [Unknown]
  - Infusion related reaction [Unknown]
  - Emotional distress [Unknown]
  - Depression [Unknown]
  - Urinary tract infection [Unknown]
  - Sacral pain [Unknown]
  - Skin lesion [Unknown]
  - Defaecation urgency [Unknown]
  - Intentional product use issue [Unknown]
  - Product dose omission issue [Unknown]
  - Inappropriate schedule of product administration [Unknown]
  - Product use issue [Unknown]
  - Nail injury [Unknown]
  - Drooling [Unknown]
  - Rash [Unknown]
  - Malaise [Recovering/Resolving]
  - Feeling abnormal [Unknown]
  - Palpitations [Unknown]
  - Abdominal discomfort [Unknown]
  - Hypoaesthesia [Unknown]
  - Stomatitis [Unknown]
  - Infusion site induration [Unknown]
  - Pain [Unknown]
  - Infusion site bruising [Unknown]
  - Asthenia [Unknown]
  - Swelling [Unknown]
  - Insomnia [Unknown]
  - Contusion [Unknown]
  - Decreased appetite [Unknown]
  - Muscular weakness [Unknown]
  - Anxiety [Unknown]
  - Back pain [Unknown]
  - Arthralgia [Unknown]
  - Paraesthesia [Unknown]
  - Muscle spasms [Unknown]
  - Tremor [Unknown]
  - Blood pressure increased [Unknown]
  - Dyspnoea [Unknown]
  - Hypertension [Unknown]
  - Oedema [Unknown]
  - Abdominal pain [Unknown]
  - Infusion site swelling [Unknown]
  - Pain in extremity [Unknown]
  - Headache [Unknown]
  - Diarrhoea [Unknown]
  - Pruritus [Unknown]
  - Fatigue [Unknown]

NARRATIVE: CASE EVENT DATE: 20180608
